FAERS Safety Report 8561461 (Version 2)
Quarter: 2015Q3

REPORT INFORMATION
  Report Type: Spontaneous
  Country: US (occurrence: US)
  Receive Date: 20120515
  Receipt Date: 20150814
  Transmission Date: 20151125
  Serious: Yes (Hospitalization, Other)
  Sender: FDA-Public Use
  Company Number: US-AMGEN-USASP2012029124

PATIENT
  Age: 59 Year
  Sex: Female

DRUGS (2)
  1. ENBREL [Suspect]
     Active Substance: ETANERCEPT
     Indication: RHEUMATOID ARTHRITIS
     Dosage: 50 MG, QWK
     Route: 065
     Dates: start: 2009
  2. ENBREL [Suspect]
     Active Substance: ETANERCEPT
     Indication: OSTEOPOROSIS

REACTIONS (6)
  - Breast cancer [Recovered/Resolved]
  - Osteoporosis [Not Recovered/Not Resolved]
  - Injection site bruising [Recovered/Resolved]
  - Injection site reaction [Unknown]
  - Injection site pruritus [Unknown]
  - Injection site erythema [Unknown]

NARRATIVE: CASE EVENT DATE: 201111
